FAERS Safety Report 11245767 (Version 3)
Quarter: 2015Q3

REPORT INFORMATION
  Report Type: Report from Study
  Country: US (occurrence: US)
  Receive Date: 20150707
  Receipt Date: 20150818
  Transmission Date: 20151125
  Serious: Yes (Death, Hospitalization)
  Sender: FDA-Public Use
  Company Number: US-ACTELION-A-NJ2015-120367

PATIENT
  Age: 87 Year
  Sex: Female

DRUGS (2)
  1. TRACLEER [Suspect]
     Active Substance: BOSENTAN
     Indication: PULMONARY HYPERTENSION
     Dosage: UNK
     Route: 048
     Dates: start: 20120531, end: 20150721
  2. ELIQUIS [Concomitant]
     Active Substance: APIXABAN

REACTIONS (10)
  - Dyspnoea [Fatal]
  - Idiopathic pulmonary fibrosis [Fatal]
  - Hypotension [Fatal]
  - Pneumonia [Recovered/Resolved]
  - Gastrointestinal haemorrhage [Recovering/Resolving]
  - Oxygen saturation decreased [Unknown]
  - Pulmonary hypertension [Unknown]
  - Hypoxia [Fatal]
  - Pulmonary oedema [Unknown]
  - Packed red blood cell transfusion [Recovering/Resolving]

NARRATIVE: CASE EVENT DATE: 20150621
